FAERS Safety Report 5309571-4 (Version None)
Quarter: 2007Q2

REPORT INFORMATION
  Report Type: 
  Country: None (occurrence: None)
  Receive Date: 20070425
  Receipt Date: 20070425
  Transmission Date: 20071010
  Serious: Yes (Other)
  Sender: FDA-Public Use
  Company Number: None

PATIENT
  Sex: Male
  Weight: 66 kg

DRUGS (8)
  1. SEROQUEL [Suspect]
     Indication: AFFECTIVE DISORDER
     Dosage: 500-1400MG/DAY  1-3X/DAY  PO
     Route: 048
     Dates: start: 20020917, end: 20070224
  2. SEROQUEL [Suspect]
     Indication: INTERMITTENT EXPLOSIVE DISORDER
     Dosage: 500-1400MG/DAY  1-3X/DAY  PO
     Route: 048
     Dates: start: 20020917, end: 20070224
  3. DILANTIN [Concomitant]
  4. KEPPRA [Concomitant]
  5. DEPAKOTE [Concomitant]
  6. LAMICTAL [Concomitant]
  7. FELBATOL [Concomitant]
  8. LEXAPRO [Concomitant]

REACTIONS (1)
  - NEUTROPENIA [None]
